FAERS Safety Report 17542249 (Version 1)
Quarter: 2020Q1

REPORT INFORMATION
  Report Type: Spontaneous
  Country: US (occurrence: US)
  Receive Date: 20200313
  Receipt Date: 20200313
  Transmission Date: 20200409
  Serious: No
  Sender: FDA-Public Use
  Company Number: US-009507513-2003USA003706

PATIENT
  Sex: Female

DRUGS (11)
  1. AZITHROMYCIN ANHYDROUS. [Concomitant]
     Active Substance: AZITHROMYCIN ANHYDROUS
  2. GONAL-F [Concomitant]
     Active Substance: FOLLITROPIN
  3. METHYLPREDNISOLONE. [Concomitant]
     Active Substance: METHYLPREDNISOLONE
  4. GANIRELIX ACETATE INJECTION [Suspect]
     Active Substance: GANIRELIX ACETATE
     Indication: INFERTILITY FEMALE
     Dosage: 1 SYRINGE DAILY, AS DIRECTED
     Route: 058
     Dates: start: 20191004
  5. MENOPUR [Concomitant]
     Active Substance: FOLLITROPIN\LUTEINIZING HORMONE
  6. ESTRADIOL. [Concomitant]
     Active Substance: ESTRADIOL
  7. DEXAMETHASONE. [Concomitant]
     Active Substance: DEXAMETHASONE
  8. NOVAREL [Concomitant]
     Active Substance: CHORIOGONADOTROPIN ALFA
  9. CABERGOLINE. [Concomitant]
     Active Substance: CABERGOLINE
  10. CRINONE [Concomitant]
     Active Substance: PROGESTERONE
  11. LEUPROLIDE [Concomitant]
     Active Substance: LEUPROLIDE

REACTIONS (1)
  - Rash [Recovering/Resolving]
